FAERS Safety Report 6071566-3 (Version None)
Quarter: 2009Q1

REPORT INFORMATION
  Report Type: 
  Country: None (occurrence: None)
  Receive Date: 20090210
  Receipt Date: 20090202
  Transmission Date: 20090719
  Serious: Yes (Hospitalization)
  Sender: FDA-Public Use
  Company Number: US-JNJFOC-20090200877

PATIENT
  Sex: Male
  Weight: 90.72 kg

DRUGS (8)
  1. LEVAQUIN [Suspect]
     Indication: LOCALISED INFECTION
     Route: 048
  2. NEORAL [Concomitant]
     Route: 065
  3. PREDNISONE [Concomitant]
     Route: 065
  4. AMLODIPINE [Concomitant]
     Route: 048
  5. ATENOLOL [Concomitant]
     Route: 048
  6. LISINOPRIL [Concomitant]
     Route: 048
  7. COLESTIPOL [Concomitant]
     Route: 065
  8. ALOPURINOL [Concomitant]
     Route: 048

REACTIONS (5)
  - ABDOMINAL PAIN UPPER [None]
  - ASTHENIA [None]
  - BLISTER [None]
  - EATING DISORDER [None]
  - HALLUCINATION [None]
